FAERS Safety Report 21348303 (Version 1)
Quarter: 2022Q3

REPORT INFORMATION
  Report Type: Spontaneous
  Country: BR (occurrence: BR)
  Receive Date: 20220919
  Receipt Date: 20220919
  Transmission Date: 20221027
  Serious: Yes (Hospitalization)
  Sender: FDA-Public Use
  Company Number: BR-009507513-2209BRA004997

PATIENT
  Age: 72 Year
  Sex: Male
  Weight: 80 kg

DRUGS (6)
  1. JANUMET [Suspect]
     Active Substance: METFORMIN HYDROCHLORIDE\SITAGLIPTIN PHOSPHATE
     Indication: Type 2 diabetes mellitus
     Dosage: UNK
     Route: 048
  2. ATACAND [Concomitant]
     Active Substance: CANDESARTAN CILEXETIL
     Indication: Hypertension
     Dosage: 8/12, 5 (UNIT NOT PROVIDED)
  3. OXCARBAZEPINE [Concomitant]
     Active Substance: OXCARBAZEPINE
     Indication: Trigeminal nerve disorder
     Dosage: 300 MG
  4. OXCARBAZEPINE [Concomitant]
     Active Substance: OXCARBAZEPINE
     Indication: Headache
  5. RIVOTRIL [Concomitant]
     Active Substance: CLONAZEPAM
     Indication: Sleep disorder
     Dosage: 2 MG
  6. ASPIRIN [Concomitant]
     Active Substance: ASPIRIN
     Dosage: 100 MG

REACTIONS (4)
  - Neurosurgery [Unknown]
  - Head discomfort [Unknown]
  - Cough [Unknown]
  - Wrong technique in product usage process [Unknown]

NARRATIVE: CASE EVENT DATE: 20210101
